FAERS Safety Report 6467459-X (Version None)
Quarter: 2009Q4

REPORT INFORMATION
  Report Type: 
  Country: None (occurrence: None)
  Receive Date: 20091202
  Receipt Date: 20091123
  Transmission Date: 20100525
  Serious: Yes (Hospitalization)
  Sender: FDA-Public Use
  Company Number: GXKR2009TR12734

PATIENT
  Age: 53 Year
  Sex: Female

DRUGS (4)
  1. DILTIAZEM (NGX) [Suspect]
     Dosage: 30 MG, UNK
     Route: 065
  2. MEPHENOXALONE+PARACETAMOL (NGX) [Suspect]
     Route: 065
  3. AMITRIPTYLINE [Concomitant]
     Dosage: 25 MG, UNK
     Route: 065
  4. DICLOFENAC POTASSIUM [Concomitant]
     Dosage: 50 MG, UNK
     Route: 065

REACTIONS (9)
  - ACUTE GENERALISED EXANTHEMATOUS PUSTULOSIS [None]
  - BLISTER [None]
  - GENERALISED ERYTHEMA [None]
  - GRANULOCYTOSIS [None]
  - LEUKOCYTOSIS [None]
  - PYREXIA [None]
  - RASH [None]
  - RASH PUSTULAR [None]
  - SKIN BURNING SENSATION [None]
